FAERS Safety Report 5198371-4 (Version None)
Quarter: 2006Q4

REPORT INFORMATION
  Report Type: 
  Country: None (occurrence: None)
  Receive Date: 20061228
  Receipt Date: 20061228
  Transmission Date: 20070319
  Serious: Yes (Hospitalization)
  Sender: FDA-Public Use
  Company Number: None

PATIENT
  Age: 31 Year
  Sex: Female
  Weight: 71 kg

DRUGS (5)
  1. PREDNISONE TAB [Suspect]
     Indication: DRUG HYPERSENSITIVITY
     Dosage: PO  RECENTLY
     Route: 048
  2. ALBUTEROL [Concomitant]
  3. LORAZEPAM [Concomitant]
  4. PROTONIX [Concomitant]
  5. ACETAMINOPHEN [Concomitant]

REACTIONS (1)
  - PULMONARY EMBOLISM [None]
